FAERS Safety Report 7295489-7 (Version None)
Quarter: 2011Q1

REPORT INFORMATION
  Report Type: 
  Country: None (occurrence: None)
  Receive Date: 20110216
  Receipt Date: 20101120
  Transmission Date: 20110831
  Serious: No
  Sender: FDA-Public Use
  Company Number: US-ABBOTT-10P-163-0687212-00

PATIENT
  Sex: Female
  Weight: 59.02 kg

DRUGS (6)
  1. SIMCOR [Suspect]
     Indication: HYPERLIPIDAEMIA
     Dosage: 500/20 MG EVERY NIGHT
     Dates: start: 20100701, end: 20101120
  2. LISINOPRIL [Suspect]
     Indication: HYPERTENSION
  3. LISINOPRIL [Concomitant]
     Indication: PRODUCT USED FOR UNKNOWN INDICATION
     Dosage: EVERY NIGHT
  4. IBUPROFEN [Concomitant]
     Indication: PRODUCT USED FOR UNKNOWN INDICATION
  5. ASPIRIN [Concomitant]
     Indication: PRODUCT USED FOR UNKNOWN INDICATION
  6. AMOXICILLIN [Concomitant]
     Indication: TOOTH DISORDER

REACTIONS (6)
  - FLUSHING [None]
  - MUSCLE SPASMS [None]
  - PARAESTHESIA [None]
  - URTICARIA [None]
  - PAIN IN EXTREMITY [None]
  - HYPOAESTHESIA [None]
